FAERS Safety Report 6503008-5 (Version None)
Quarter: 2009Q4

REPORT INFORMATION
  Report Type: 
  Country: None (occurrence: None)
  Receive Date: 20091217
  Receipt Date: 20091211
  Transmission Date: 20100525
  Serious: Yes (Death, Other)
  Sender: FDA-Public Use
  Company Number: ES-JNJFOC-20070307230

PATIENT
  Sex: Female

DRUGS (8)
  1. REMICADE [Suspect]
     Indication: RHEUMATOID ARTHRITIS
     Route: 042
  2. STEROIDS NOS [Concomitant]
  3. METHOTREXATE [Concomitant]
  4. NSAID [Concomitant]
  5. FOLIC ACID [Concomitant]
  6. OMEPRAZOLE [Concomitant]
  7. BENZODIAZEPINES NOS [Concomitant]
  8. ANTIDEPRESSANT [Concomitant]

REACTIONS (2)
  - CEREBRAL INFARCTION [None]
  - METASTATIC NEOPLASM [None]
